FAERS Safety Report 18522334 (Version 3)
Quarter: 2021Q1

REPORT INFORMATION
  Report Type: Spontaneous
  Country: US (occurrence: US)
  Receive Date: 20201119
  Receipt Date: 20210331
  Transmission Date: 20210419
  Serious: Yes (Hospitalization, Other)
  Sender: FDA-Public Use
  Company Number: US-MYLANLABS-2020M1093725

PATIENT
  Sex: Female

DRUGS (3)
  1. CAPECITABINE. [Interacting]
     Active Substance: CAPECITABINE
     Dosage: UNK
  2. CAPECITABINE. [Interacting]
     Active Substance: CAPECITABINE
     Indication: PRODUCT USED FOR UNKNOWN INDICATION
     Dosage: UNK
     Route: 065
  3. ALPRAZOLAM. [Suspect]
     Active Substance: ALPRAZOLAM
     Indication: INSOMNIA
     Dosage: UNK
     Route: 065

REACTIONS (11)
  - Blister [Recovered/Resolved]
  - Skin exfoliation [Recovering/Resolving]
  - Palmar-plantar erythrodysaesthesia syndrome [Recovered/Resolved]
  - Fatigue [Recovering/Resolving]
  - Drug interaction [Unknown]
  - Rib fracture [Recovering/Resolving]
  - Diarrhoea [Unknown]
  - Pain [Unknown]
  - Constipation [Recovered/Resolved]
  - Off label use [Unknown]
  - Skin swelling [Recovering/Resolving]
